FAERS Safety Report 7211536-2 (Version None)
Quarter: 2011Q1

REPORT INFORMATION
  Report Type: 
  Country: None (occurrence: None)
  Receive Date: 20110105
  Receipt Date: 20101227
  Transmission Date: 20110831
  Serious: Yes (Other)
  Sender: FDA-Public Use
  Company Number: US-ELI_LILLY_AND_COMPANY-US201010002857

PATIENT
  Sex: Female
  Weight: 73.016 kg

DRUGS (20)
  1. MAGNESIUM [Concomitant]
     Dosage: 250 MG, 2/D
     Route: 048
  2. NEURONTIN [Concomitant]
     Indication: FIBROMYALGIA
     Dosage: 300 MG, 3/D
  3. AMBIEN [Concomitant]
     Dosage: 5 MG, EACH EVENING
  4. LYCOPODIUM CLAVATUM [Concomitant]
  5. MAGNESIUM CITRATE [Concomitant]
     Dosage: 1000 MG, DAILY (1/D)
  6. L-LYSINE [Concomitant]
     Dosage: 500 MG, DAILY (1/D)
     Route: 048
  7. PLAVIX [Concomitant]
     Dosage: 75 MG, DAILY (1/D)
     Route: 048
     Dates: start: 20100201, end: 20100910
  8. OXYGEN [Concomitant]
     Dosage: 2000 ML, EACH EVENING
  9. CALCIUM [Concomitant]
     Dosage: 500 MG, 2/D
     Route: 048
  10. FORTEO [Suspect]
     Indication: OSTEOPOROSIS
     Dosage: 20 UG, DAILY (1/D)
     Dates: start: 20101001
  11. FLAXSEED OIL [Concomitant]
     Dosage: 4 G, DAILY (1/D)
  12. PERCOCET [Concomitant]
  13. GLUCOSAMINE + CHONDROITIN [Concomitant]
     Dosage: 1500 MG, DAILY (1/D)
     Route: 048
  14. MULTI-VITAMIN [Concomitant]
     Dosage: 1 TABLET, DAILY (1/D)
     Route: 048
  15. ASPIRIN [Concomitant]
     Dosage: 81 MG, DAILY (1/D)
     Route: 048
  16. NITROGLYCERIN [Concomitant]
     Dosage: 0.4 MG, QOD
  17. VIT D [Concomitant]
     Dosage: 2000 IU, DAILY (1/D)
     Route: 048
  18. BENADRYL [Concomitant]
     Dosage: 25 MG, UNK
     Route: 048
  19. BENAZEPRIL [Concomitant]
     Dosage: 20 MG, 2/D
     Route: 048
  20. HAWTHORN [Concomitant]
     Dosage: 675 MG, UNK
     Route: 048

REACTIONS (15)
  - MUSCLE SPASMS [None]
  - NAUSEA [None]
  - ERYTHEMA [None]
  - INJECTION SITE ERYTHEMA [None]
  - INJECTION SITE RASH [None]
  - HEADACHE [None]
  - HYPOAESTHESIA [None]
  - DYSGEUSIA [None]
  - MENTAL IMPAIRMENT [None]
  - SOMNOLENCE [None]
  - APHASIA [None]
  - DIZZINESS [None]
  - AGRAPHIA [None]
  - HEART RATE INCREASED [None]
  - SENSORY LOSS [None]
